FAERS Safety Report 9772462 (Version 1)
Quarter: 2013Q4

REPORT INFORMATION
  Report Type: Spontaneous
  Country: US (occurrence: None)
  Receive Date: 20131218
  Receipt Date: 20131218
  Transmission Date: 20140711
  Serious: No
  Sender: FDA-Public Use
  Company Number: None

PATIENT
  Age: 68 Year
  Sex: Female
  Weight: 79.8 kg

DRUGS (1)
  1. PACLITAXEL (TAXOL) [Suspect]
     Indication: LUNG CARCINOMA CELL TYPE UNSPECIFIED STAGE III
     Route: 042
     Dates: start: 20131022

REACTIONS (4)
  - Infusion related reaction [None]
  - Unresponsive to stimuli [None]
  - Dyskinesia [None]
  - Wheezing [None]
